FAERS Safety Report 25974756 (Version 1)
Quarter: 2025Q4

REPORT INFORMATION
  Report Type: Spontaneous
  Country: US (occurrence: None)
  Receive Date: 20251028
  Receipt Date: 20251028
  Transmission Date: 20260118
  Serious: Yes (Hospitalization)
  Sender: FDA-CTU
  Company Number: None

PATIENT
  Age: 75 Year
  Sex: Male

DRUGS (1)
  1. JAYPIRCA [Suspect]
     Active Substance: PIRTOBRUTINIB
     Indication: Waldenstrom^s macroglobulinaemia
     Dates: start: 20251006

REACTIONS (2)
  - Gastrointestinal stoma complication [None]
  - Vascular occlusion [None]

NARRATIVE: CASE EVENT DATE: 20251010
